FAERS Safety Report 10884035 (Version 1)
Quarter: 2015Q1

REPORT INFORMATION
  Report Type: Spontaneous
  Country: US (occurrence: None)
  Receive Date: 20150226
  Receipt Date: 20150226
  Transmission Date: 20150721
  Serious: Yes (Death)
  Sender: FDA-Public Use
  Company Number: ABR_02013_2015

PATIENT
  Age: 36 Year
  Sex: Male

DRUGS (3)
  1. MITRAGYNINE [Suspect]
     Active Substance: MITRAGYNINE
     Indication: PRODUCT USED FOR UNKNOWN INDICATION
     Dosage: DF
     Route: 048
  2. PAROXETINE [Suspect]
     Active Substance: PAROXETINE\PAROXETINE HYDROCHLORIDE
     Indication: PRODUCT USED FOR UNKNOWN INDICATION
     Dosage: DF
     Route: 048
  3. LAMOTRIGINE. [Suspect]
     Active Substance: LAMOTRIGINE
     Indication: PRODUCT USED FOR UNKNOWN INDICATION
     Dosage: DF
     Route: 048

REACTIONS (20)
  - Poisoning [None]
  - Tachycardia [None]
  - Apnoea [None]
  - Unresponsive to stimuli [None]
  - Pulmonary embolism [None]
  - Mydriasis [None]
  - Hypoxic-ischaemic encephalopathy [None]
  - Oxygen saturation decreased [None]
  - Drug abuse [None]
  - Brain injury [None]
  - Fall [None]
  - Brain death [None]
  - Brain stem haemorrhage [None]
  - Toxicity to various agents [None]
  - Venous thrombosis [None]
  - Generalised tonic-clonic seizure [None]
  - Cardiac arrest [None]
  - Brain oedema [None]
  - Pulmonary infarction [None]
  - International normalised ratio increased [None]

NARRATIVE: CASE EVENT DATE: 2013
